FAERS Safety Report 13172453 (Version 1)
Quarter: 2017Q1

REPORT INFORMATION
  Report Type: Spontaneous
  Country: US (occurrence: US)
  Receive Date: 20170130
  Receipt Date: 20170130
  Transmission Date: 20170428
  Serious: No
  Sender: FDA-Public Use
  Company Number: None

PATIENT
  Age: 54 Year
  Sex: Female

DRUGS (1)
  1. IBRANCE [Suspect]
     Active Substance: PALBOCICLIB
     Indication: BREAST CANCER FEMALE
     Dosage: 125MG CAPSULE ONCE DAILY FOR 21 DAYS ON THEN BY MOUTH
     Route: 048
     Dates: start: 20161227, end: 20170123

REACTIONS (7)
  - Anaemia [None]
  - Dysgeusia [None]
  - Weight decreased [None]
  - Leukopenia [None]
  - Decreased appetite [None]
  - Pain [None]
  - Nausea [None]

NARRATIVE: CASE EVENT DATE: 20170123
